FAERS Safety Report 14339446 (Version 1)
Quarter: 2017Q4

REPORT INFORMATION
  Report Type: Spontaneous
  Country: CA (occurrence: CA)
  Receive Date: 20171230
  Receipt Date: 20171230
  Transmission Date: 20180321
  Serious: Yes (Hospitalization)
  Sender: FDA-Public Use
  Company Number: CA-BAXTER-2017BAX044887

PATIENT
  Sex: Female

DRUGS (1)
  1. EXTRANEAL [Suspect]
     Active Substance: CALCIUM CHLORIDE\ICODEXTRIN\MAGNESIUM CHLORIDE\SODIUM CHLORIDE\SODIUM LACTATE
     Indication: PERITONEAL DIALYSIS
     Route: 033

REACTIONS (6)
  - Eye discharge [Unknown]
  - Rhinorrhoea [Unknown]
  - Rash [Unknown]
  - Cardiac failure congestive [Unknown]
  - Otorrhoea [Unknown]
  - Vaginal discharge [Unknown]

NARRATIVE: CASE EVENT DATE: 201712
